FAERS Safety Report 15557878 (Version 1)
Quarter: 2018Q4

REPORT INFORMATION
  Report Type: Spontaneous
  Country: DE (occurrence: DE)
  Receive Date: 20181027
  Receipt Date: 20181027
  Transmission Date: 20190205
  Serious: Yes (Other)
  Sender: FDA-Public Use
  Company Number: DE-009507513-1810DEU008524

PATIENT
  Age: 22 Year
  Sex: Female

DRUGS (3)
  1. PREDALON 5000 IE [Suspect]
     Active Substance: CHORIOGONADOTROPIN ALFA
     Dosage: DAY 6, 10,000 IU/D
  2. PREDALON 5000 IE [Suspect]
     Active Substance: CHORIOGONADOTROPIN ALFA
     Dosage: DAY 2, 10,000 IU/D,
  3. PREDALON 5000 IE [Suspect]
     Active Substance: CHORIOGONADOTROPIN ALFA
     Dosage: DAY 2, 5000 IU/D

REACTIONS (4)
  - Cushing^s syndrome [Unknown]
  - Hypercorticoidism [Unknown]
  - Hyperandrogenism [Unknown]
  - Maternal exposure before pregnancy [Unknown]
